FAERS Safety Report 9097105 (Version 1)
Quarter: 2013Q1

REPORT INFORMATION
  Report Type: Spontaneous
  Country: GB (occurrence: None)
  Receive Date: 20130123
  Receipt Date: 20130123
  Transmission Date: 20140127
  Serious: Yes (Hospitalization)
  Sender: FDA-Public Use
  Company Number: AUR-APL-2013-00783

PATIENT
  Sex: Male

DRUGS (2)
  1. OLANZAPINE (OLANZAPINE) [Suspect]
     Indication: SCHIZOPHRENIA
     Dosage: 7.5 MG (7.5 MG, 1 IN 1 D), ORAL
     Route: 048
     Dates: start: 20121026, end: 20121228
  2. FLUPHENAZINE DECANOATE (FLUPHENAZINE DECANOATE) [Suspect]
     Indication: SCHIZOPHRENIA
     Dosage: 25 MG, 1 IN 2 WK, INTRAMUSCULAR
     Route: 030
     Dates: start: 20121026, end: 20121228

REACTIONS (3)
  - Convulsion [None]
  - Liver function test abnormal [None]
  - Blood bilirubin increased [None]
